FAERS Safety Report 5221639-X (Version None)
Quarter: 2007Q1

REPORT INFORMATION
  Report Type: 
  Country: None (occurrence: None)
  Receive Date: 20070129
  Receipt Date: 20070117
  Transmission Date: 20070707
  Serious: Yes (Other)
  Sender: FDA-Public Use
  Company Number: PHBS2007AT01024

PATIENT
  Age: 66 Year
  Sex: Female
  Weight: 53 kg

DRUGS (3)
  1. ZOMETA [Suspect]
     Indication: METASTASES TO BONE
     Dosage: 3-4 MG, EVERY 21 DAYS
     Route: 042
     Dates: start: 20030320, end: 20061031
  2. TRASTUZUMAB [Concomitant]
     Indication: METASTASES TO BONE
     Dosage: 6 MG, EVERY 21 DAYS
     Route: 042
     Dates: start: 20030312, end: 20061219
  3. EXEMESTANE [Concomitant]
     Indication: METASTASES TO BONE
     Dosage: 25 MG/D
     Route: 048
     Dates: start: 20060518

REACTIONS (4)
  - JAW OPERATION [None]
  - OSTEONECROSIS [None]
  - SINUSITIS [None]
  - TOOTH EXTRACTION [None]
